FAERS Safety Report 9804998 (Version 1)
Quarter: 2014Q1

REPORT INFORMATION
  Report Type: Report from Study
  Country: US (occurrence: US)
  Receive Date: 20140109
  Receipt Date: 20140109
  Transmission Date: 20141002
  Serious: Yes (Other)
  Sender: FDA-Public Use
  Company Number: US-ROCHE-1321370

PATIENT
  Age: 62 Year
  Sex: Female
  Weight: 92.16 kg

DRUGS (24)
  1. FLONASE [Concomitant]
     Dosage: 50 MCG 2 SPRAY QD
     Route: 045
  2. TUSSIONEX (UNITED STATES) [Concomitant]
     Dosage: 10-8MG/5ML. 5 ML AS NEEDED EVERY 12 HRS.
     Route: 065
  3. PREDNISONE [Concomitant]
     Route: 048
  4. LEVAQUIN [Concomitant]
     Route: 048
  5. BONIVA [Suspect]
     Indication: SENILE OSTEOPOROSIS
     Dosage: 3MG/ML
     Route: 042
     Dates: start: 201201
  6. ALBUTEROL SULFATE [Concomitant]
     Dosage: 2.5MG/3ML 0.083%
     Route: 065
  7. ASPIRIN [Concomitant]
     Route: 048
  8. TYLENOL [Concomitant]
     Indication: ARTHRALGIA
     Route: 048
  9. NITROLINGUAL [Concomitant]
     Dosage: 0.4 MG/SPRAY PRN
     Route: 065
  10. FLEXERIL (UNITED STATES) [Concomitant]
     Indication: PAIN
     Route: 048
  11. HYDROCODONE/ACETAMINOPHEN [Concomitant]
     Dosage: 5/500 MG
     Route: 048
  12. FUROSEMIDE [Concomitant]
     Route: 048
  13. ATENOLOL [Concomitant]
     Route: 048
  14. COMBIVENT [Concomitant]
     Dosage: 2 PUFFS QID
     Route: 045
  15. PROAIR (UNITED STATES) [Concomitant]
     Dosage: 2 PUFFS QID
     Route: 045
  16. QVAR [Concomitant]
     Dosage: 80MICRO
     Route: 045
  17. LOVASTATIN [Concomitant]
     Route: 048
  18. LOVASTATIN [Concomitant]
     Route: 048
  19. ASTELIN [Concomitant]
     Dosage: 1 PUFF IN EACH NOSTRIL TWICE A DAY
     Route: 045
  20. ALPRAZOLAM [Concomitant]
     Route: 048
  21. ISOSORBIDE DINITRATE [Concomitant]
     Route: 048
  22. POTASSIUM CHLORIDE [Concomitant]
     Route: 048
  23. SINGULAIR [Concomitant]
     Dosage: 1 TABLET IN THE EVENING
     Route: 048
  24. NEXIUM [Concomitant]
     Dosage: 1 TABLET AT BEDTIME
     Route: 048

REACTIONS (5)
  - Obstructive airways disorder [Unknown]
  - Cough [Unknown]
  - Dizziness [Unknown]
  - Macular degeneration [Unknown]
  - Hypertensive heart disease [Unknown]
